FAERS Safety Report 21393565 (Version 1)
Quarter: 2022Q3

REPORT INFORMATION
  Report Type: Report from Study
  Country: US (occurrence: US)
  Receive Date: 20220929
  Receipt Date: 20220929
  Transmission Date: 20221026
  Serious: No
  Sender: FDA-Public Use
  Company Number: US-ACADIA PHARMACEUTICALS INC.-ACA-2022-PIM-003020

PATIENT
  Age: 82 Year
  Sex: Female

DRUGS (11)
  1. NUPLAZID [Suspect]
     Active Substance: PIMAVANSERIN TARTRATE
     Indication: Parkinson^s disease psychosis
     Dosage: 34 MILLIGRAM, QD
     Route: 065
     Dates: start: 20220903, end: 20220905
  2. ASPIRIN [Concomitant]
     Active Substance: ASPIRIN
     Dosage: 81 MILLIGRAM
  3. ATENOLOL [Concomitant]
     Active Substance: ATENOLOL
     Dosage: 25 MILLIGRAM, BID
  4. BUSPIRONE [Concomitant]
     Active Substance: BUSPIRONE HYDROCHLORIDE
     Dosage: 5 MILLIGRAM, BID
  5. CALCIUM LACTATE\CALCIUM PHOSPHATE\CHOLECALCIFEROL [Concomitant]
     Active Substance: CALCIUM LACTATE\CALCIUM PHOSPHATE\CHOLECALCIFEROL
     Dosage: 500-500 MG DAILY
  6. CARBIDOPA\LEVODOPA [Concomitant]
     Active Substance: CARBIDOPA\LEVODOPA
     Dosage: 25/100 MG, 2.5 TABLETS 5 TIMES A DAY (2 TABLETS AT 9 PM AND 3 AM AS NEEDED)
  7. CARBIDOPA\LEVODOPA [Concomitant]
     Active Substance: CARBIDOPA\LEVODOPA
     Dosage: 50/200 MG AT BEDTIME
  8. CITALOPRAM [Concomitant]
     Active Substance: CITALOPRAM HYDROBROMIDE
     Dosage: 10 MILLIGRAM, QD
  9. DORZOLAMIDE\TIMOLOL [Concomitant]
     Active Substance: DORZOLAMIDE\TIMOLOL
     Dosage: 22.3 MG-6.8MG/ML, 1 DROP IN RIGHT EYE TWICE A DAY
  10. QUETIAPINE [Concomitant]
     Active Substance: QUETIAPINE
     Dosage: 25MG 2 TABLETS TWICE DAILY
  11. ROSUVASTATIN [Concomitant]
     Active Substance: ROSUVASTATIN
     Dosage: 10 MILLIGRAM, QD

REACTIONS (3)
  - Dizziness [Recovered/Resolved]
  - Gait disturbance [Recovered/Resolved]
  - Nausea [Recovered/Resolved]

NARRATIVE: CASE EVENT DATE: 20220903
